FAERS Safety Report 19053717 (Version 1)
Quarter: 2021Q1

REPORT INFORMATION
  Report Type: Spontaneous
  Country: US (occurrence: US)
  Receive Date: 20210324
  Receipt Date: 20210324
  Transmission Date: 20210420
  Serious: No
  Sender: FDA-Public Use
  Company Number: US-BRECKENRIDGE PHARMACEUTICAL, INC.-2108397

PATIENT
  Age: 70 Year
  Sex: Female
  Weight: 77.27 kg

DRUGS (3)
  1. ALPRAZOLAM. [Suspect]
     Active Substance: ALPRAZOLAM
     Route: 048
  2. UNSPECIFIED BLOOD THINNER [Concomitant]
     Active Substance: UNSPECIFIED INGREDIENT
  3. METFORMIN [Concomitant]
     Active Substance: METFORMIN HYDROCHLORIDE

REACTIONS (1)
  - Therapeutic product ineffective [None]
